FAERS Safety Report 12381271 (Version 1)
Quarter: 2016Q2

REPORT INFORMATION
  Report Type: Spontaneous
  Country: US (occurrence: None)
  Receive Date: 20160517
  Receipt Date: 20160517
  Transmission Date: 20160815
  Serious: Yes (Life-Threatening)
  Sender: FDA-Public Use
  Company Number: None

PATIENT
  Age: 78 Year
  Sex: Female
  Weight: 75.3 kg

DRUGS (2)
  1. LINQ INSERTED HEART MONITOR [Concomitant]
  2. FLUOXETINE HCL [Suspect]
     Active Substance: FLUOXETINE HYDROCHLORIDE
     Indication: DEPRESSION
     Dosage: 10MG + 20MG  10AM + 20 PM  TWICE DAILY  BY MOUTH
     Route: 048
     Dates: end: 20160319

REACTIONS (4)
  - Device damage [None]
  - Angiopathy [None]
  - Cerebral hypoperfusion [None]
  - Dizziness [None]
